FAERS Safety Report 8493385-0 (Version None)
Quarter: 2012Q3

REPORT INFORMATION
  Report Type: 
  Country: None (occurrence: None)
  Receive Date: 20120706
  Receipt Date: 20120627
  Transmission Date: 20120928
  Serious: Yes (Other)
  Sender: FDA-Public Use
  Company Number: PHHY2012BR045611

PATIENT
  Sex: Female

DRUGS (3)
  1. ONBREZ [Suspect]
     Indication: BRONCHIAL DISORDER
  2. EXELON [Suspect]
     Indication: MEMORY IMPAIRMENT
     Dosage: 4.6 MG/ 24HRS
     Route: 062
  3. ONBREZ [Suspect]
     Indication: LUNG DISORDER
     Dosage: 150 UG, UNK

REACTIONS (4)
  - URINARY TRACT INFECTION [None]
  - GAIT DISTURBANCE [None]
  - DEMENTIA ALZHEIMER'S TYPE [None]
  - MALAISE [None]
